FAERS Safety Report 9658548 (Version 3)
Quarter: 2014Q1

REPORT INFORMATION
  Report Type: Spontaneous
  Country: CH (occurrence: CH)
  Receive Date: 20131030
  Receipt Date: 20140220
  Transmission Date: 20141002
  Serious: Yes (Death, Congenital Anomaly, Other)
  Sender: FDA-Public Use
  Company Number: CH-ROCHE-1293956

PATIENT
  Sex: Male
  Weight: .2 kg

DRUGS (7)
  1. MABTHERA [Suspect]
     Indication: PRODUCT USED FOR UNKNOWN INDICATION
     Dosage: TOTAL 4 DOSES
     Route: 064
     Dates: start: 20121019, end: 20121109
  2. CO-TRIMOXAZOLE [Suspect]
     Indication: PRODUCT USED FOR UNKNOWN INDICATION
     Dosage: 800/160 MG UNTILL GESTATION WEEK 18
     Route: 064
     Dates: start: 20121018, end: 201212
  3. PREDNISONE [Suspect]
     Indication: PRODUCT USED FOR UNKNOWN INDICATION
     Route: 064
     Dates: start: 20121018
  4. IMUREK [Suspect]
     Indication: PRODUCT USED FOR UNKNOWN INDICATION
     Dosage: 50-100 MG; UNTIL POSTPARTAL
     Route: 064
     Dates: start: 20121118
  5. ARANESP [Suspect]
     Indication: PRODUCT USED FOR UNKNOWN INDICATION
     Dosage: 100-150 MG
     Route: 064
     Dates: start: 20121018
  6. TRANDATE [Suspect]
     Indication: PRODUCT USED FOR UNKNOWN INDICATION
     Dosage: 600-2400 MG; UNTILL POST PARTAL
     Route: 064
     Dates: start: 20121018
  7. ALDOMET [Suspect]
     Indication: PRODUCT USED FOR UNKNOWN INDICATION
     Route: 064
     Dates: start: 201212

REACTIONS (10)
  - Exomphalos [Unknown]
  - Congenital hand malformation [Unknown]
  - Congenital nose malformation [Unknown]
  - Hypertelorism of orbit [Unknown]
  - Low set ears [Unknown]
  - Growth retardation [Unknown]
  - Dysmorphism [Unknown]
  - Congenital hand malformation [Unknown]
  - Foetal death [Fatal]
  - Foetal exposure during pregnancy [Unknown]
